FAERS Safety Report 7312074-9 (Version None)
Quarter: 2011Q1

REPORT INFORMATION
  Report Type: 
  Country: None (occurrence: None)
  Receive Date: 20110224
  Receipt Date: 20110125
  Transmission Date: 20110831
  Serious: Yes (Death)
  Sender: FDA-Public Use
  Company Number: US-TYCO HEALTHCARE/MALLINCKRODT-T201100238

PATIENT
  Age: 39 Year
  Sex: Male

DRUGS (3)
  1. OXYCODONE HCL AND ACETAMINOPHEN [Suspect]
     Route: 048
  2. SKELETAL MUSCLE RELAXANT [Suspect]
     Route: 048
  3. HYDROCODONE/ACETAMINOPHEN [Suspect]
     Route: 048

REACTIONS (1)
  - CARDIO-RESPIRATORY ARREST [None]
